FAERS Safety Report 15999327 (Version 2)
Quarter: 2019Q2

REPORT INFORMATION
  Report Type: Spontaneous
  Country: US (occurrence: US)
  Receive Date: 20190225
  Receipt Date: 20190617
  Transmission Date: 20190711
  Serious: No
  Sender: FDA-Public Use
  Company Number: US-PFIZER INC-2019078274

PATIENT
  Age: 40 Year
  Sex: Female

DRUGS (8)
  1. XELJANZ XR [Suspect]
     Active Substance: TOFACITINIB CITRATE
     Indication: RHEUMATOID ARTHRITIS
     Dosage: 11 MG, 1X/DAY
     Route: 048
     Dates: start: 20180814
  2. ZYRTEC [Concomitant]
     Active Substance: CETIRIZINE HYDROCHLORIDE
     Dosage: 10 MG, DAILY
  3. FLONASE [Concomitant]
     Active Substance: FLUTICASONE PROPIONATE
     Dosage: 200 UG, UNK [50 MCG 2 SPRAYS IN EACH NOSTRIL]
  4. IPRATROPIUM [Concomitant]
     Active Substance: IPRATROPIUM
     Dosage: UNK, 2X/DAY [2 SPRAYS EACH NOSTRIL TWICE A DAY]
  5. VITAMIN D3 [Concomitant]
     Active Substance: CHOLECALCIFEROL
     Dosage: 2000 MG, DAILY
  6. GABAPENTIN. [Concomitant]
     Active Substance: GABAPENTIN
     Dosage: 1200 MG, DAILY [600 MG 2 A DAY]
  7. FLEXERIL [Concomitant]
     Active Substance: CYCLOBENZAPRINE HYDROCHLORIDE
     Dosage: 20 MG, DAILY [10 MG 2 A DAY]
  8. CYMBALTA [Concomitant]
     Active Substance: DULOXETINE HYDROCHLORIDE
     Dosage: 60 MG, DAILY

REACTIONS (3)
  - Malaise [Recovered/Resolved]
  - Pyrexia [Recovered/Resolved]
  - Upper respiratory tract infection [Recovered/Resolved]

NARRATIVE: CASE EVENT DATE: 2019
